FAERS Safety Report 15106496 (Version 1)
Quarter: 2018Q3

REPORT INFORMATION
  Report Type: Spontaneous
  Country: US (occurrence: US)
  Receive Date: 20180704
  Receipt Date: 20180704
  Transmission Date: 20181010
  Serious: No
  Sender: FDA-Public Use
  Company Number: US-SA-2018SA133806

PATIENT
  Sex: Male

DRUGS (1)
  1. SODIUM FLUORIDE. [Suspect]
     Active Substance: SODIUM FLUORIDE
     Dosage: UNK UNK,UNK
     Route: 065

REACTIONS (2)
  - Product taste abnormal [Unknown]
  - Burning sensation [Unknown]
